FAERS Safety Report 7272452-3 (Version None)
Quarter: 2011Q1

REPORT INFORMATION
  Report Type: 
  Country: None (occurrence: None)
  Receive Date: 20110203
  Receipt Date: 20110127
  Transmission Date: 20110831
  Serious: Yes (Hospitalization)
  Sender: FDA-Public Use
  Company Number: JP-ROCHE-673007

PATIENT
  Sex: Female
  Weight: 50 kg

DRUGS (50)
  1. TOCILIZUMAB [Suspect]
     Route: 041
     Dates: start: 20091005, end: 20091005
  2. TOCILIZUMAB [Suspect]
     Route: 041
     Dates: start: 20091207, end: 20091207
  3. TOCILIZUMAB [Suspect]
     Route: 041
     Dates: start: 20100104, end: 20100104
  4. CLARITHROMYCIN [Suspect]
     Indication: BRONCHITIS CHRONIC
     Dosage: DOSE FORM: PERORAL AGENT
     Route: 048
     Dates: start: 20051007, end: 20090301
  5. CRAVIT [Suspect]
     Indication: BRONCHITIS CHRONIC
     Dosage: DOSE FORM: PERORAL AGENT
     Route: 048
     Dates: start: 20090302
  6. BENET [Concomitant]
     Dosage: DRUG NAME: BENET (SODIUM RISEDRONATE HYDRATE)
     Route: 048
     Dates: start: 20080811
  7. SEVOFLURANE [Concomitant]
     Route: 065
     Dates: start: 20100118, end: 20100122
  8. WARKMIN [Concomitant]
     Dosage: PERORAL AGENT
     Route: 048
     Dates: start: 20081226
  9. SOL-MELCORT [Concomitant]
     Dosage: DOSAGE IS UNCERTAIN.
     Route: 042
     Dates: start: 20100118
  10. TOCILIZUMAB [Suspect]
     Route: 041
     Dates: start: 20090303, end: 20090303
  11. TOCILIZUMAB [Suspect]
     Route: 041
     Dates: start: 20090331, end: 20090331
  12. TOCILIZUMAB [Suspect]
     Route: 041
     Dates: start: 20090903, end: 20090903
  13. LIPITOR [Concomitant]
     Route: 048
     Dates: start: 20090706, end: 20100126
  14. TERNELIN [Concomitant]
     Dosage: PERORAL AGENT
     Route: 048
     Dates: start: 20081226
  15. TOCILIZUMAB [Suspect]
     Indication: RHEUMATOID ARTHRITIS
     Route: 041
     Dates: start: 20090107, end: 20090107
  16. TOCILIZUMAB [Suspect]
     Route: 041
     Dates: start: 20090611, end: 20090611
  17. ADALAT CC [Suspect]
     Indication: HYPERTENSION
     Dosage: FORM: SUSTAINED RELEASE TABLETS
     Route: 048
     Dates: start: 20070323
  18. ALFAROL [Concomitant]
     Route: 048
     Dates: start: 20080811
  19. FERROUS CITRATE [Concomitant]
     Dosage: DOSE FORM: PERORAL AGENT
     Route: 048
     Dates: start: 20090105, end: 20090202
  20. BONALON [Concomitant]
     Route: 048
     Dates: start: 20081226
  21. TAKEPRON [Concomitant]
     Route: 048
     Dates: start: 20101227
  22. ULTIVA [Concomitant]
     Dosage: DOSAGE IS UNCERTAIN.
     Route: 042
     Dates: start: 20100118
  23. TOCILIZUMAB [Suspect]
     Route: 041
     Dates: start: 20090709, end: 20090709
  24. FLUTIDE DISKUS [Concomitant]
     Dosage: DRUG REPORTED AS: FLUTIDE:DISKUS ( FLUTICASONE PROPIONATE)
     Route: 055
     Dates: start: 20080204
  25. AZULENE SULFONATE SODIUM/L-GLUTAMINE [Concomitant]
     Dosage: MINUTE GRAIN
     Route: 048
     Dates: start: 20070223, end: 20100130
  26. ADOAIR [Concomitant]
     Dosage: RESPIRATORY (INHALATION), DOSAGE IS UNCERTAIN.
     Route: 050
     Dates: start: 20100106
  27. NEOPHYLLIN [Concomitant]
     Route: 042
  28. TOCILIZUMAB [Suspect]
     Route: 041
     Dates: start: 20090203, end: 20090203
  29. TOCILIZUMAB [Suspect]
     Route: 041
     Dates: start: 20100712, end: 20100712
  30. TOCILIZUMAB [Suspect]
     Route: 041
     Dates: start: 20101018, end: 20101018
  31. TOCILIZUMAB [Suspect]
     Route: 041
     Dates: start: 20101227, end: 20101227
  32. METHOTREXATE [Concomitant]
     Dosage: DOSE FORM: PERORAL AGENT
     Route: 048
     Dates: start: 20090127
  33. THYRADIN S [Concomitant]
     Route: 048
     Dates: start: 20090706, end: 20100127
  34. MUSCULAX [Concomitant]
     Dosage: DOSAGE IS UNCERTAIN.
     Dates: start: 20100118
  35. PROPOFOL [Concomitant]
     Dosage: DOSAGE IS UNCERTAIN.
     Route: 042
     Dates: start: 20100118
  36. TOCILIZUMAB [Suspect]
     Route: 041
     Dates: start: 20090511, end: 20090511
  37. MYONAL [Concomitant]
     Dosage: DOSE FORM: PERORAL AGENT
     Route: 048
     Dates: start: 20080811
  38. THEO-DUR [Concomitant]
     Dosage: DOSE FORM: PERORAL AGENT
     Route: 048
     Dates: start: 20051007
  39. TOCILIZUMAB [Suspect]
     Route: 041
     Dates: start: 20090806, end: 20090806
  40. TOCILIZUMAB [Suspect]
     Route: 041
     Dates: start: 20091102, end: 20091102
  41. TOCILIZUMAB [Suspect]
     Route: 041
     Dates: start: 20100607, end: 20100607
  42. TOCILIZUMAB [Suspect]
     Route: 041
     Dates: start: 20100906, end: 20100906
  43. TOCILIZUMAB [Suspect]
     Route: 041
     Dates: start: 20101122, end: 20101122
  44. CELECOXIB [Suspect]
     Indication: RHEUMATOID ARTHRITIS
     Route: 048
     Dates: start: 20080811
  45. CLARITHROMYCIN [Suspect]
     Dosage: DOSE FORM: PERORAL AGENT
     Route: 048
     Dates: start: 20100104, end: 20100411
  46. LASIX [Suspect]
     Indication: HYPERTENSION
     Dosage: DOSE FORM: PERORAL AGENT
     Route: 048
     Dates: start: 20051128, end: 20100130
  47. MUCOSTA [Concomitant]
     Dosage: DOSE FORM: PERORAL AGENT
     Route: 048
     Dates: start: 20080811
  48. SEREVENT [Concomitant]
     Route: 055
     Dates: start: 20080204
  49. SEVOFLURANE [Concomitant]
     Dosage: DOSAGE IS UNCERTAIN
     Route: 065
     Dates: start: 20100118
  50. MUCOSIL-10 [Concomitant]
     Dosage: DOSE FORM: PERORAL AGENT
     Route: 048
     Dates: start: 20051007

REACTIONS (7)
  - HEPATIC FUNCTION ABNORMAL [None]
  - PRODUCTIVE COUGH [None]
  - C-REACTIVE PROTEIN INCREASED [None]
  - PYREXIA [None]
  - ASTHMA [None]
  - PLATELET COUNT DECREASED [None]
  - TENDON RUPTURE [None]
